FAERS Safety Report 4912710-8 (Version None)
Quarter: 2006Q1

REPORT INFORMATION
  Report Type: 
  Country: None (occurrence: None)
  Receive Date: 20060215
  Receipt Date: 20060209
  Transmission Date: 20060701
  Serious: Yes (Other)
  Sender: FDA-Public Use
  Company Number: US-MERCK-0602USA02465

PATIENT
  Sex: Male

DRUGS (1)
  1. VYTORIN [Suspect]
     Route: 048

REACTIONS (6)
  - AORTIC ANEURYSM [None]
  - ASTHENIA [None]
  - BACK PAIN [None]
  - DECREASED ACTIVITY [None]
  - MYALGIA [None]
  - TREMOR [None]
